FAERS Safety Report 4923849-5 (Version None)
Quarter: 2006Q1

REPORT INFORMATION
  Report Type: 
  Country: None (occurrence: None)
  Receive Date: 20060224
  Receipt Date: 20060224
  Transmission Date: 20060701
  Serious: Yes (Hospitalization)
  Sender: FDA-Public Use
  Company Number: None

PATIENT
  Age: 46 Year
  Sex: Female

DRUGS (4)
  1. CYMBALTA [Suspect]
     Indication: NEUROFIBROMATOSIS
     Dosage: PO
     Route: 048
     Dates: start: 20051016, end: 20051016
  2. CYMBALTA [Suspect]
     Indication: PAIN
     Dosage: PO
     Route: 048
     Dates: start: 20051016, end: 20051016
  3. DURAGESIC-100 [Concomitant]
  4. TOPAMAX [Concomitant]

REACTIONS (1)
  - URTICARIA [None]
